FAERS Safety Report 12457460 (Version 5)
Quarter: 2016Q4

REPORT INFORMATION
  Report Type: Spontaneous
  Country: JP (occurrence: JP)
  Receive Date: 20160610
  Receipt Date: 20161207
  Transmission Date: 20170207
  Serious: Yes (Other)
  Sender: FDA-Public Use
  Company Number: JP-GILEAD-2016-0217371

PATIENT
  Age: 29 Year
  Sex: Female
  Weight: 44.5 kg

DRUGS (4)
  1. COPEGUS [Suspect]
     Active Substance: RIBAVIRIN
     Dosage: UNK
     Route: 048
     Dates: start: 201606, end: 201608
  2. SOVALDI [Suspect]
     Active Substance: SOFOSBUVIR
     Indication: CHRONIC HEPATITIS C
     Dosage: 400 MG, UNK
     Route: 048
     Dates: start: 20160517, end: 20160530
  3. SOVALDI [Suspect]
     Active Substance: SOFOSBUVIR
     Dosage: UNK
     Route: 048
     Dates: start: 201606, end: 201608
  4. COPEGUS [Suspect]
     Active Substance: RIBAVIRIN
     Indication: CHRONIC HEPATITIS C
     Dosage: UNK UNK, BID
     Route: 048
     Dates: start: 20160517, end: 20160530

REACTIONS (4)
  - Maternal exposure during pregnancy [Recovered/Resolved]
  - Hepatitis C [Unknown]
  - Drug ineffective [Unknown]
  - Imminent abortion [Recovered/Resolved]

NARRATIVE: CASE EVENT DATE: 201605
